FAERS Safety Report 9260409 (Version 1)
Quarter: 2013Q2

REPORT INFORMATION
  Report Type: Report from Study
  Country: US (occurrence: US)
  Receive Date: 20130429
  Receipt Date: 20130429
  Transmission Date: 20140414
  Serious: Yes (Death)
  Sender: FDA-Public Use
  Company Number: US-ASTELLAS-2013US004461

PATIENT
  Age: 58 Year
  Sex: Male

DRUGS (1)
  1. ERLOTINIB TABLET [Suspect]
     Indication: TRACHEAL CANCER
     Dosage: 150 MG, UID/QD
     Route: 048
     Dates: start: 20121210

REACTIONS (2)
  - Off label use [Unknown]
  - Death [Fatal]
